FAERS Safety Report 7942004-8 (Version None)
Quarter: 2011Q4

REPORT INFORMATION
  Report Type: 
  Country: None (occurrence: None)
  Receive Date: 20111122
  Receipt Date: 20111109
  Transmission Date: 20120403
  Serious: Yes (Death)
  Sender: FDA-Public Use
  Company Number: 0222006

PATIENT
  Age: 81 Year
  Sex: Male

DRUGS (1)
  1. TACHOSIL [Suspect]
     Indication: COLON NEOPLASM

REACTIONS (1)
  - DEATH [None]
